FAERS Safety Report 7069029-1 (Version None)
Quarter: 2010Q4

REPORT INFORMATION
  Report Type: 
  Country: None (occurrence: None)
  Receive Date: 20101028
  Receipt Date: 20101020
  Transmission Date: 20110411
  Serious: Yes (Death)
  Sender: FDA-Public Use
  Company Number: US-BAXTER-2010BH023667

PATIENT
  Age: 71 Year
  Sex: Female

DRUGS (1)
  1. DIANEAL [Suspect]
     Indication: PERITONEAL DIALYSIS
     Route: 033
     Dates: end: 20100911

REACTIONS (6)
  - BLOOD PRESSURE [None]
  - CARDIAC DISORDER [None]
  - CARDIAC FAILURE [None]
  - INFECTION [None]
  - LABILE BLOOD PRESSURE [None]
  - RESPIRATORY FAILURE [None]
